FAERS Safety Report 16137286 (Version 3)
Quarter: 2019Q4

REPORT INFORMATION
  Report Type: Spontaneous
  Country: ES (occurrence: ES)
  Receive Date: 20190401
  Receipt Date: 20191220
  Transmission Date: 20200122
  Serious: Yes (Hospitalization, Other)
  Sender: FDA-Public Use
  Company Number: ES-SA-2019SA080154

PATIENT
  Age: 69 Year
  Sex: Female
  Weight: 72 kg

DRUGS (4)
  1. OLMESARTAN MEDOXOMIL. [Suspect]
     Active Substance: OLMESARTAN MEDOXOMIL
     Dosage: UNK UNK, UNK
     Route: 065
  2. ADALIMUMAB [Suspect]
     Active Substance: ADALIMUMAB
     Indication: RHEUMATOID ARTHRITIS
     Dosage: UNK, QOW
     Route: 065
     Dates: start: 2016
  3. LEFLUNOMIDE. [Suspect]
     Active Substance: LEFLUNOMIDE
     Indication: RHEUMATOID ARTHRITIS
     Dosage: UNK UNK, UNK
     Route: 065
     Dates: start: 2016
  4. PREDNISONE. [Suspect]
     Active Substance: PREDNISONE
     Indication: RHEUMATOID ARTHRITIS
     Dosage: 2.5 MG, QD
     Route: 065
     Dates: start: 2016

REACTIONS (13)
  - Diarrhoea [Recovered/Resolved]
  - Palpitations [Unknown]
  - Constipation [Unknown]
  - Weight decreased [Unknown]
  - Acute kidney injury [Unknown]
  - Osteoporosis [Unknown]
  - Nervousness [Unknown]
  - Spinal compression fracture [Unknown]
  - Malabsorption [Recovering/Resolving]
  - Loss of personal independence in daily activities [Unknown]
  - Sleep disorder [Unknown]
  - Kyphosis [Unknown]
  - Back pain [Unknown]

NARRATIVE: CASE EVENT DATE: 2017
